FAERS Safety Report 9851193 (Version 1)
Quarter: 2014Q1

REPORT INFORMATION
  Report Type: Spontaneous
  Country: US (occurrence: US)
  Receive Date: 20140128
  Receipt Date: 20140128
  Transmission Date: 20141002
  Serious: Yes (Death, Hospitalization, Other)
  Sender: FDA-Public Use
  Company Number: US-GILEAD-2014-0093124

PATIENT
  Age: 73 Year
  Sex: Female

DRUGS (1)
  1. RANEXA [Suspect]
     Indication: PRODUCT USED FOR UNKNOWN INDICATION
     Dosage: UNK MG, UNK
     Route: 048

REACTIONS (6)
  - Death [Fatal]
  - Renal failure [Unknown]
  - Acute coronary syndrome [Unknown]
  - Creatinine renal clearance increased [Unknown]
  - Organ failure [Unknown]
  - Malaise [Unknown]
